FAERS Safety Report 14407691 (Version 1)
Quarter: 2018Q1

REPORT INFORMATION
  Report Type: Spontaneous
  Country: SG (occurrence: SG)
  Receive Date: 20180118
  Receipt Date: 20180118
  Transmission Date: 20180509
  Serious: Yes (Other)
  Sender: FDA-Public Use
  Company Number: SG-ALLERGAN-1802484US

PATIENT
  Age: 61 Year
  Sex: Male

DRUGS (1)
  1. ETIDRONATE DISODIUM UNK [Suspect]
     Active Substance: ETIDRONATE DISODIUM
     Indication: PRODUCT USED FOR UNKNOWN INDICATION
     Dosage: 400 MG, EVERY FORTNIGHT
     Route: 065
     Dates: start: 2005, end: 2007

REACTIONS (2)
  - Pathological fracture [Unknown]
  - Femur fracture [Unknown]

NARRATIVE: CASE EVENT DATE: 2010
